FAERS Safety Report 5972965-8 (Version None)
Quarter: 2008Q4

REPORT INFORMATION
  Report Type: 
  Country: None (occurrence: None)
  Receive Date: 20081201
  Receipt Date: 20081124
  Transmission Date: 20090506
  Serious: Yes (Other)
  Sender: FDA-Public Use
  Company Number: PHBS2008BR06437

PATIENT
  Age: 40 Year
  Sex: Male

DRUGS (3)
  1. CYCLOSPORINE [Suspect]
     Indication: BONE MARROW TRANSPLANT
     Dosage: UNK
     Dates: start: 19970901
  2. CYCLOSPORINE [Suspect]
     Indication: PROPHYLAXIS AGAINST GRAFT VERSUS HOST DISEASE
  3. PREDNISONE TAB [Suspect]
     Indication: CHRONIC GRAFT VERSUS HOST DISEASE
     Dosage: 55 MG/DAY
     Dates: start: 20070101

REACTIONS (13)
  - CHRONIC GRAFT VERSUS HOST DISEASE [None]
  - DISEASE RECURRENCE [None]
  - EXCISION OF PALATAL LESION [None]
  - GINGIVAL DISORDER [None]
  - HYPERKERATOSIS [None]
  - LASER THERAPY [None]
  - LEUKOPLAKIA ORAL [None]
  - LICHENIFICATION [None]
  - ORAL DISORDER [None]
  - ORAL PAIN [None]
  - PALATAL DISORDER [None]
  - PAPILLOMA [None]
  - THROMBOCYTOPENIA [None]
